FAERS Safety Report 6250701-8 (Version None)
Quarter: 2009Q2

REPORT INFORMATION
  Report Type: 
  Country: None (occurrence: None)
  Receive Date: 20090630
  Receipt Date: 20090508
  Transmission Date: 20091009
  Serious: Yes (Death)
  Sender: FDA-Public Use
  Company Number: IT-PFIZER INC-2009179055

PATIENT
  Age: 64 Year

DRUGS (19)
  1. BLINDED *NO SUBJECT DRUG [Suspect]
     Indication: ASPERGILLOSIS
     Dosage: UNK EVERY DAY
     Route: 042
     Dates: start: 20090220, end: 20090304
  2. BLINDED *PLACEBO [Suspect]
     Indication: ASPERGILLOSIS
     Dosage: UNK EVERY DAY
     Route: 042
     Dates: start: 20090220, end: 20090304
  3. BLINDED ANIDULAFUNGIN [Suspect]
     Indication: ASPERGILLOSIS
     Dosage: UNK EVERY DAY
     Route: 042
     Dates: start: 20090220, end: 20090304
  4. VORICONAZOLE [Suspect]
     Indication: ASPERGILLOSIS
     Dosage: UNK EVERY DAY
     Route: 042
     Dates: start: 20090220, end: 20090305
  5. LINEZOLID [Concomitant]
     Dosage: UNK
     Route: 042
     Dates: start: 20090302, end: 20090317
  6. MEROPENEM [Concomitant]
     Dosage: UNK
     Route: 042
     Dates: start: 20090317, end: 20090318
  7. ACYCLOVIR [Concomitant]
     Dosage: UNK
     Route: 042
     Dates: start: 20090303, end: 20090315
  8. COLISTIN [Concomitant]
     Dosage: UNK
     Route: 042
     Dates: start: 20090304, end: 20090310
  9. CYCLOSPORINE [Concomitant]
     Dosage: UNK
     Route: 042
     Dates: start: 20090308, end: 20090310
  10. CASPOFUNGIN [Concomitant]
     Dosage: UNK
     Route: 042
     Dates: start: 20090305, end: 20090317
  11. FUROSEMIDE [Concomitant]
     Dosage: UNK
     Route: 042
     Dates: start: 20090220, end: 20090312
  12. MEROPENEM [Concomitant]
     Dosage: UNK
     Route: 042
     Dates: start: 20090224, end: 20090316
  13. PIPERACILLIN SODIUM AND TAZOBACTAM SODIUM [Concomitant]
     Dosage: UNK
     Route: 042
     Dates: start: 20090316, end: 20090317
  14. REVIVAN [Concomitant]
     Dosage: UNK
     Route: 042
     Dates: start: 20090304, end: 20090304
  15. REVIVAN [Concomitant]
     Dosage: UNK
     Route: 042
     Dates: start: 20090317, end: 20090318
  16. EMAGEL [Concomitant]
     Dosage: UNK
     Route: 042
     Dates: start: 20090317, end: 20090318
  17. NEUPOGEN [Concomitant]
     Dosage: UNK
     Route: 058
     Dates: start: 20090307, end: 20090307
  18. OMEPRAZOLE [Concomitant]
     Dosage: UNK
     Route: 042
     Dates: start: 20090313, end: 20090318
  19. AT III [Concomitant]
     Dosage: UNK
     Route: 042
     Dates: start: 20090305, end: 20090308

REACTIONS (1)
  - SEPTIC SHOCK [None]
